FAERS Safety Report 5125858-2 (Version None)
Quarter: 2006Q4

REPORT INFORMATION
  Report Type: 
  Country: None (occurrence: None)
  Receive Date: 20061012
  Receipt Date: 20060814
  Transmission Date: 20070319
  Serious: Yes (Disabling)
  Sender: FDA-Public Use
  Company Number: GB-GLAXOSMITHKLINE-B0434249A

PATIENT
  Age: 55 Year
  Sex: Female

DRUGS (1)
  1. AQUAFRESH EXTREME CLEAN TOOTHPASTE TUBE [Suspect]
     Indication: DENTAL CLEANING
     Dates: start: 20060809

REACTIONS (4)
  - BURNING SENSATION [None]
  - ORAL DISCOMFORT [None]
  - ORAL PAIN [None]
  - SWELLING FACE [None]
